FAERS Safety Report 7210657-8 (Version None)
Quarter: 2011Q1

REPORT INFORMATION
  Report Type: 
  Country: None (occurrence: None)
  Receive Date: 20110105
  Receipt Date: 20101230
  Transmission Date: 20110831
  Serious: No
  Sender: FDA-Public Use
  Company Number: US-PFIZER INC-2010182437

PATIENT
  Age: 40 Year
  Sex: Female
  Weight: 77.098 kg

DRUGS (1)
  1. ADVIL CONGESTION RELIEF [Suspect]
     Indication: NASAL CONGESTION
     Dosage: 1 TAB, 1X/DAY
     Route: 048
     Dates: start: 20101228, end: 20101229

REACTIONS (1)
  - DRUG INEFFECTIVE [None]
